FAERS Safety Report 24054260 (Version 1)
Quarter: 2024Q3

REPORT INFORMATION
  Report Type: Spontaneous
  Country: DK (occurrence: DK)
  Receive Date: 20240705
  Receipt Date: 20240705
  Transmission Date: 20241017
  Serious: Yes (Hospitalization, Other)
  Sender: AJANTA PHARMA
  Company Number: DK-AJANTA-2024AJA00120

PATIENT
  Age: 70 Year
  Sex: Female

DRUGS (1)
  1. CHOLESTYRAMINE [Suspect]
     Active Substance: CHOLESTYRAMINE
     Indication: Product used for unknown indication

REACTIONS (2)
  - Intestinal perforation [Recovered/Resolved]
  - Crystal deposit intestine [Recovered/Resolved]
